FAERS Safety Report 18083245 (Version 1)
Quarter: 2020Q3

REPORT INFORMATION
  Report Type: Spontaneous
  Country: CN (occurrence: CN)
  Receive Date: 20200729
  Receipt Date: 20200729
  Transmission Date: 20201103
  Serious: Yes (Other)
  Sender: FDA-Public Use
  Company Number: CN-PFIZER INC-2020284259

PATIENT
  Age: 45 Year
  Sex: Male
  Weight: 62 kg

DRUGS (5)
  1. VALACYCLOVIR HYDROCHLORIDE. [Suspect]
     Active Substance: VALACYCLOVIR HYDROCHLORIDE
     Indication: HERPES ZOSTER
     Dosage: 0.6 G, 3X/DAY
     Route: 048
     Dates: start: 20200706, end: 20200711
  2. CELEBREX [Suspect]
     Active Substance: CELECOXIB
     Indication: ANALGESIC THERAPY
     Dosage: 0.2 G, 2X/DAY
     Route: 048
     Dates: start: 20200706, end: 20200711
  3. THALIDOMIDE [Suspect]
     Active Substance: THALIDOMIDE
     Indication: HERPES ZOSTER
     Dosage: 25 MG, 1X/DAY
     Route: 048
     Dates: start: 20200711, end: 20200711
  4. COBAMAMIDE [Concomitant]
     Active Substance: COBAMAMIDE
     Indication: THERAPEUTIC PROCEDURE
     Dosage: 1.5 MG, 1X/DAY
     Route: 030
     Dates: start: 20200706, end: 20200711
  5. STERILE WATER [Concomitant]
     Active Substance: WATER
     Indication: VEHICLE SOLUTION USE
     Dosage: 1 ML, 1X/DAY
     Route: 030
     Dates: start: 20200706, end: 20200711

REACTIONS (2)
  - Pruritus [Recovering/Resolving]
  - Erythema [Recovering/Resolving]

NARRATIVE: CASE EVENT DATE: 20200711
